FAERS Safety Report 8170759-9 (Version None)
Quarter: 2012Q1

REPORT INFORMATION
  Report Type: 
  Country: None (occurrence: None)
  Receive Date: 20120105
  Receipt Date: 20110902
  Transmission Date: 20120608
  Serious: Yes (Other)
  Sender: FDA-Public Use
  Company Number: 2011P1009112

PATIENT
  Age: 45 Year
  Sex: Female
  Weight: 70.75 kg

DRUGS (2)
  1. PREDNISONE [Suspect]
     Indication: AUTOIMMUNE DISORDER
     Dates: start: 20091101, end: 20110501
  2. PREDNISONE [Suspect]
     Indication: INFLAMMATION
     Dates: start: 20091101, end: 20110501

REACTIONS (3)
  - WEIGHT INCREASED [None]
  - ABDOMINAL DISTENSION [None]
  - PAIN [None]
